FAERS Safety Report 6254231-9 (Version None)
Quarter: 2009Q2

REPORT INFORMATION
  Report Type: 
  Country: None (occurrence: None)
  Receive Date: 20090630
  Receipt Date: 20090630
  Transmission Date: 20091009
  Serious: No
  Sender: FDA-Public Use
  Company Number: None

PATIENT
  Age: 28 Month
  Sex: Male
  Weight: 14.0615 kg

DRUGS (1)
  1. ZYRTEC [Suspect]
     Indication: MULTIPLE ALLERGIES
     Dosage: 1 TABLET 1 TIME/DAY PO
     Route: 048
     Dates: start: 20080225, end: 20080311

REACTIONS (3)
  - ABNORMAL DREAMS [None]
  - FEAR [None]
  - SLEEP DISORDER [None]
